FAERS Safety Report 23047500 (Version 2)
Quarter: 2023Q4

REPORT INFORMATION
  Report Type: Spontaneous
  Country: US (occurrence: US)
  Receive Date: 20231010
  Receipt Date: 20231122
  Transmission Date: 20240110
  Serious: Yes (Other)
  Sender: FDA-Public Use
  Company Number: US-OYSTER POINT PHARMA, INC-US-OYS-23-001179

PATIENT
  Age: 74 Year
  Sex: Female

DRUGS (4)
  1. TYRVAYA [Suspect]
     Active Substance: VARENICLINE TARTRATE
     Indication: Dry eye
     Dosage: UNK, BID
     Route: 045
     Dates: start: 20230918, end: 20230924
  2. HISTAMINE [Concomitant]
     Active Substance: HISTAMINE
     Indication: Product used for unknown indication
     Dosage: UNK, BIW
     Route: 065
  3. RESTASIS [Concomitant]
     Active Substance: CYCLOSPORINE
     Indication: Product used for unknown indication
     Dosage: UNK, UNK
     Route: 065
     Dates: start: 2007, end: 202309
  4. SYSTANE (HYPROMELLOSE 2910 (4000 MPA.S)) [Concomitant]
     Active Substance: HYPROMELLOSE 2910 (4000 MPA.S)
     Indication: Product used for unknown indication
     Dosage: UNK, UNK
     Route: 065
     Dates: start: 2007, end: 202309

REACTIONS (3)
  - Tunnel vision [Recovered/Resolved]
  - Migraine [Recovered/Resolved]
  - Product delivery mechanism issue [Unknown]

NARRATIVE: CASE EVENT DATE: 20230924
